FAERS Safety Report 9498718 (Version 3)
Quarter: 2013Q3

REPORT INFORMATION
  Report Type: Spontaneous
  Country: CN (occurrence: CN)
  Receive Date: 20130904
  Receipt Date: 20130912
  Transmission Date: 20140515
  Serious: Yes (Hospitalization, Other)
  Sender: FDA-Public Use
  Company Number: CN-ABBOTT-13P-035-1131677-00

PATIENT
  Age: 22 Year
  Sex: Male
  Weight: 50 kg

DRUGS (2)
  1. HUMIRA [Suspect]
     Indication: ANKYLOSING SPONDYLITIS
     Route: 058
     Dates: start: 20130718, end: 20130822
  2. THALIDOMIDE [Concomitant]
     Indication: ANKYLOSING SPONDYLITIS
     Route: 048
     Dates: start: 201307, end: 201308

REACTIONS (10)
  - Cough [Unknown]
  - Anaphylactic reaction [Unknown]
  - Pyrexia [Recovered/Resolved]
  - Parotitis [Unknown]
  - Rash [Recovering/Resolving]
  - Lung infection [Recovering/Resolving]
  - Rash [Recovered/Resolved]
  - Rash [Recovering/Resolving]
  - Pyrexia [Recovered/Resolved]
  - Rash generalised [Recovering/Resolving]
